FAERS Safety Report 7849844-4 (Version None)
Quarter: 2011Q4

REPORT INFORMATION
  Report Type: 
  Country: None (occurrence: None)
  Receive Date: 20111026
  Receipt Date: 20111011
  Transmission Date: 20120403
  Serious: Yes (Other)
  Sender: FDA-Public Use
  Company Number: GB-MYLANLABS-2011S1020470

PATIENT
  Sex: Male

DRUGS (3)
  1. FLUOROURACIL [Suspect]
     Indication: COLON CANCER STAGE III
  2. CAPECITABINE [Suspect]
     Indication: COLON CANCER STAGE III
     Dates: start: 20080401
  3. OXALIPLATIN [Suspect]
     Indication: COLON CANCER STAGE III
     Dates: start: 20080401

REACTIONS (2)
  - DIARRHOEA [None]
  - PULMONARY FIBROSIS [None]
